FAERS Safety Report 10869117 (Version 3)
Quarter: 2015Q3

REPORT INFORMATION
  Report Type: Report from Study
  Country: US (occurrence: US)
  Receive Date: 20150225
  Receipt Date: 20150825
  Transmission Date: 20151125
  Serious: Yes (Death, Hospitalization, Other)
  Sender: FDA-Public Use
  Company Number: US-GILEAD-2015-0138937

PATIENT
  Age: 79 Year
  Sex: Female

DRUGS (21)
  1. AMBRISENTAN [Suspect]
     Active Substance: AMBRISENTAN
     Indication: SCLERODERMA
  2. VITAMIN E [Concomitant]
     Active Substance: .ALPHA.-TOCOPHEROL
  3. LIDODERM [Concomitant]
     Active Substance: LIDOCAINE
  4. ATIVAN [Concomitant]
     Active Substance: LORAZEPAM
  5. CALMOSEPTINE                       /01344201/ [Concomitant]
  6. VANCOMYCIN [Concomitant]
     Active Substance: VANCOMYCIN
  7. ACETAMINOPHEN. [Concomitant]
     Active Substance: ACETAMINOPHEN
  8. LEVSIN SL [Concomitant]
     Active Substance: HYOSCYAMINE SULFATE
  9. ONDANSETRON [Concomitant]
     Active Substance: ONDANSETRON
  10. TRANSDERM SCOP [Concomitant]
     Active Substance: SCOPOLAMINE
  11. HALDOL                             /00027403/ [Concomitant]
  12. COLYTE                             /00751601/ [Concomitant]
  13. SILDENAFIL. [Concomitant]
     Active Substance: SILDENAFIL
  14. TYVASO [Concomitant]
     Active Substance: TREPROSTINIL
  15. COENZIME Q10 [Concomitant]
  16. TYLENOL ARTHRITIS PAIN [Concomitant]
     Active Substance: ACETAMINOPHEN
  17. OXYCODONE [Concomitant]
     Active Substance: OXYCODONE
  18. DULCOLAX (BISACODYL) [Concomitant]
     Active Substance: BISACODYL
  19. AMBRISENTAN [Suspect]
     Active Substance: AMBRISENTAN
     Indication: CARDIAC SEPTAL DEFECT
     Dosage: 10 MG, QD
     Route: 048
     Dates: start: 201004
  20. AMBRISENTAN [Suspect]
     Active Substance: AMBRISENTAN
     Indication: PULMONARY ARTERIAL HYPERTENSION
     Dosage: 5 UNK, UNK
     Route: 048
     Dates: start: 200911
  21. CETIRIZINE [Concomitant]
     Active Substance: CETIRIZINE HYDROCHLORIDE

REACTIONS (4)
  - Pulmonary hypertension [Fatal]
  - Haematemesis [Unknown]
  - Right ventricular failure [Fatal]
  - Asthenia [Unknown]
